FAERS Safety Report 11536919 (Version 1)
Quarter: 2015Q3

REPORT INFORMATION
  Report Type: Spontaneous
  Country: US (occurrence: None)
  Receive Date: 20150921
  Receipt Date: 20150921
  Transmission Date: 20151125
  Serious: Yes (Hospitalization, Disabling, Other)
  Sender: FDA-Public Use
  Company Number: None

PATIENT
  Age: 76 Year
  Weight: 45.81 kg

DRUGS (1)
  1. GARAMYCIN [Suspect]
     Active Substance: GENTAMICIN SULFATE
     Route: 048

REACTIONS (12)
  - Pain [None]
  - Faecal incontinence [None]
  - Asthenia [None]
  - Dyspnoea [None]
  - Movement disorder [None]
  - Weight decreased [None]
  - Vertigo [None]
  - Deafness [None]
  - Blindness unilateral [None]
  - Mental disorder [None]
  - Urinary incontinence [None]
  - Alopecia [None]

NARRATIVE: CASE EVENT DATE: 20150715
